FAERS Safety Report 7889043-3 (Version None)
Quarter: 2011Q4

REPORT INFORMATION
  Report Type: 
  Country: None (occurrence: None)
  Receive Date: 20111103
  Receipt Date: 20111028
  Transmission Date: 20120403
  Serious: Yes (Hospitalization)
  Sender: FDA-Public Use
  Company Number: US-AMGEN-USACT2011052506

PATIENT
  Age: 69 Year
  Sex: Male
  Weight: 92.99 kg

DRUGS (19)
  1. CARBOPLATIN [Concomitant]
     Indication: NON-SMALL CELL LUNG CANCER
     Dosage: UNK
     Dates: start: 20110801, end: 20110906
  2. SERTRALINE HYDROCHLORIDE [Concomitant]
     Dosage: 25 MG, BID
  3. PRAVASTATIN [Concomitant]
     Dosage: 10 MG, UNK
  4. BENZTROPINE MESYLATE [Concomitant]
     Dosage: 1 MG, UNK
  5. LIPITOR [Concomitant]
     Dosage: 50 MG, UNK
  6. MULTI-VITAMINS [Concomitant]
  7. HALOPERIDOL [Concomitant]
     Dosage: 5 MG, UNK
  8. GEMFIBROZIL [Concomitant]
     Dosage: 600 MG, BID
  9. PANITUMUMAB [Suspect]
     Indication: NON-SMALL CELL LUNG CANCER
     Dosage: UNK
     Dates: start: 20110801, end: 20110906
  10. PROCHLORPERAZINE [Concomitant]
  11. JANUVIA [Concomitant]
     Dosage: 100 MG, BID
  12. DOXYCYCLINE [Concomitant]
     Dosage: 100 MG, BID
  13. PACLITAXEL [Concomitant]
     Indication: NON-SMALL CELL LUNG CANCER
     Dosage: UNK
     Dates: start: 20110801, end: 20110906
  14. ASCORBIC ACID [Concomitant]
  15. ASPIRIN [Concomitant]
  16. GLUCOPHAGE [Concomitant]
     Dosage: UNK UNK, BID
  17. VESICARE [Concomitant]
     Dosage: 5 MG, UNK
  18. LITHIUM CITRATE [Concomitant]
     Dosage: 600 MG, BID
  19. HYDROCHLOROTHIAZIDE [Concomitant]
     Dosage: 25 MG, UNK

REACTIONS (3)
  - PNEUMONIA [None]
  - LUNG INFILTRATION [None]
  - MENTAL STATUS CHANGES [None]
